FAERS Safety Report 12432628 (Version 7)
Quarter: 2025Q3

REPORT INFORMATION
  Report Type: Spontaneous
  Country: EU (occurrence: EU)
  Receive Date: 20160603
  Receipt Date: 20250715
  Transmission Date: 20251020
  Serious: Yes (Death, Life-Threatening, Hospitalization, Other)
  Sender: AUROBINDO
  Company Number: EU-AUROBINDO-AUR-APL-2015-12199

PATIENT
  Age: 53 Year
  Sex: Male

DRUGS (14)
  1. ASPIRIN [Interacting]
     Active Substance: ASPIRIN
     Indication: Antiplatelet therapy
     Route: 048
  2. ASPIRIN [Interacting]
     Active Substance: ASPIRIN
     Route: 048
  3. IBUPROFEN [Interacting]
     Active Substance: IBUPROFEN
     Indication: Inflammation
     Dosage: 400 MILLIGRAM, ONCE A DAY TAKEN AT LEAST 2 H AFTER ASA
     Route: 048
  4. IBUPROFEN [Interacting]
     Active Substance: IBUPROFEN
     Indication: Prophylaxis
  5. TICAGRELOR [Concomitant]
     Active Substance: TICAGRELOR
     Indication: Antiplatelet therapy
     Route: 048
  6. HEPARIN [Concomitant]
     Active Substance: HEPARIN SODIUM
     Indication: Anticoagulant therapy
     Route: 042
  7. EPTIFIBATIDE [Concomitant]
     Active Substance: EPTIFIBATIDE
     Indication: Antiplatelet therapy
     Route: 040
  8. DEXAMETHASONE [Concomitant]
     Active Substance: DEXAMETHASONE
     Indication: Inflammation
     Dosage: 4 MILLIGRAM, 3 TIMES A DAY
  9. DEXAMETHASONE [Concomitant]
     Active Substance: DEXAMETHASONE
     Indication: Oedema
     Route: 042
  10. DEXAMETHASONE [Concomitant]
     Active Substance: DEXAMETHASONE
     Indication: Prophylaxis
  11. DEXAMETHASONE [Concomitant]
     Active Substance: DEXAMETHASONE
     Indication: Oedema
  12. DEXAMETHASONE [Concomitant]
     Active Substance: DEXAMETHASONE
     Indication: Angioedema
  13. DEXAMETHASONE [Concomitant]
     Active Substance: DEXAMETHASONE
     Indication: Aneurysm
  14. DEXAMETHASONE [Concomitant]
     Active Substance: DEXAMETHASONE
     Indication: Steroid therapy

REACTIONS (11)
  - Cardio-respiratory arrest [Fatal]
  - Arterial thrombosis [Fatal]
  - Brain oedema [Fatal]
  - Brain herniation [Fatal]
  - Drug interaction [Fatal]
  - Coma [Fatal]
  - Basilar artery thrombosis [Fatal]
  - Ischaemic cerebral infarction [Fatal]
  - Medication error [Fatal]
  - Fall [Unknown]
  - Syncope [Unknown]
